FAERS Safety Report 7877796-X (Version None)
Quarter: 2011Q4

REPORT INFORMATION
  Report Type: 
  Country: None (occurrence: None)
  Receive Date: 20111031
  Receipt Date: 20111031
  Transmission Date: 20120403
  Serious: Yes (Other)
  Sender: FDA-Public Use
  Company Number: None

PATIENT
  Age: 31 Year
  Sex: Female
  Weight: 47.173 kg

DRUGS (2)
  1. VIMPAT SAMPLE PACK WEEK 2 [Concomitant]
  2. VIMPAT [Suspect]
     Indication: AFFECTIVE DISORDER
     Dates: start: 20110916, end: 20110930

REACTIONS (11)
  - DYSPHEMIA [None]
  - RESTLESSNESS [None]
  - IRRITABILITY [None]
  - EMOTIONAL POVERTY [None]
  - SUICIDAL IDEATION [None]
  - CEREBRAL DISORDER [None]
  - FALL [None]
  - FEELING DRUNK [None]
  - DEPRESSION [None]
  - GRAND MAL CONVULSION [None]
  - CONVULSION [None]
